FAERS Safety Report 11308231 (Version 10)
Quarter: 2016Q2

REPORT INFORMATION
  Report Type: Report from Study
  Country: US (occurrence: US)
  Receive Date: 20150724
  Receipt Date: 20160629
  Transmission Date: 20160815
  Serious: Yes (Hospitalization)
  Sender: FDA-Public Use
  Company Number: US-ROCHE-1611016

PATIENT
  Age: 59 Year
  Sex: Female
  Weight: 57.9 kg

DRUGS (18)
  1. VITAMIN A [Concomitant]
     Active Substance: VITAMIN A
     Dosage: 10000 UNIT DAILY
     Route: 065
     Dates: start: 20140416
  2. VEMURAFENIB [Suspect]
     Active Substance: VEMURAFENIB
     Indication: GLIOBLASTOMA
     Dosage: LAST DOSE PRIOR TO EVENT OF RASH: 05/APR/2014
     Route: 048
     Dates: start: 20140326
  3. VEMURAFENIB [Suspect]
     Active Substance: VEMURAFENIB
     Dosage: LAST DOSE PRIOR TO EVENT OF SOFT TISSUE INFECTION: 14/JUL/2015
     Route: 048
     Dates: start: 20140417, end: 20150714
  4. CLOBETASOL [Concomitant]
     Active Substance: CLOBETASOL
     Dosage: 2 APPLICATION
     Route: 065
     Dates: start: 20140404
  5. TRIAMCINOLONE [Concomitant]
     Active Substance: TRIAMCINOLONE
     Dosage: 2 APPLICATION
     Route: 065
     Dates: start: 20140404
  6. BROMELAIN [Concomitant]
     Active Substance: BROMELAINS
     Route: 065
     Dates: start: 20140820
  7. WHEY PROTEIN [Concomitant]
     Route: 065
     Dates: start: 20140416
  8. ACLOVATE [Concomitant]
     Active Substance: ALCLOMETASONE DIPROPIONATE
     Dosage: 2 APPLICATION
     Route: 065
     Dates: start: 20140407
  9. ASTRAGALUS [Concomitant]
     Route: 065
     Dates: start: 20140820
  10. FOSAMAX [Concomitant]
     Active Substance: ALENDRONATE SODIUM
     Route: 065
     Dates: start: 20140429
  11. VEMURAFENIB [Suspect]
     Active Substance: VEMURAFENIB
     Route: 048
     Dates: start: 20150720
  12. CARNITINE [Concomitant]
     Active Substance: CARNITINE
     Route: 065
     Dates: start: 20140416
  13. SELENIUM [Concomitant]
     Active Substance: SELENIUM
     Route: 065
     Dates: start: 20140416
  14. SALICYLIC ACID. [Concomitant]
     Active Substance: SALICYLIC ACID
     Dosage: 2 APPLICATION
     Route: 065
     Dates: start: 20140319
  15. OMEGA 3 [Concomitant]
     Active Substance: OMEGA-3 FATTY ACIDS
     Dosage: 1000/500 MG
     Route: 065
     Dates: start: 20140416
  16. VITAMIN C [Concomitant]
     Active Substance: ASCORBIC ACID
     Route: 065
     Dates: start: 20140416
  17. NEXIUM [Concomitant]
     Active Substance: ESOMEPRAZOLE MAGNESIUM
     Route: 065
     Dates: start: 20131118
  18. VITAMIN E [Concomitant]
     Active Substance: .ALPHA.-TOCOPHEROL
     Dosage: 800 UNIT
     Route: 065
     Dates: start: 201403

REACTIONS (1)
  - Soft tissue infection [Recovered/Resolved]

NARRATIVE: CASE EVENT DATE: 20150714
